FAERS Safety Report 15997493 (Version 2)
Quarter: 2019Q1

REPORT INFORMATION
  Report Type: Spontaneous
  Country: GB (occurrence: GB)
  Receive Date: 20190222
  Receipt Date: 20190308
  Transmission Date: 20190418
  Serious: Yes (Other)
  Sender: FDA-Public Use
  Company Number: GB-BAUSCH-BL-2019-005374

PATIENT
  Age: 68 Year
  Sex: Male

DRUGS (1)
  1. PREDNISOLONE. [Suspect]
     Active Substance: PREDNISOLONE
     Indication: POLYMYALGIA RHEUMATICA
     Route: 065

REACTIONS (2)
  - Pyomyositis [Recovered/Resolved]
  - Staphylococcal bacteraemia [Recovered/Resolved]
